FAERS Safety Report 10456933 (Version 1)
Quarter: 2014Q3

REPORT INFORMATION
  Report Type: Other
  Country: GB (occurrence: GB)
  Receive Date: 20140916
  Receipt Date: 20140916
  Transmission Date: 20150326
  Serious: Yes (Other)
  Sender: FDA-Public Use
  Company Number: GB-MYLAN-2014M1003544

PATIENT

DRUGS (10)
  1. DIGOXIN. [Concomitant]
     Active Substance: DIGOXIN
     Dosage: LONG TERM MEDICATION
  2. MUCODYNE [Concomitant]
     Active Substance: CARBOCYSTEINE
     Dosage: LONG TERM MEDICATION
  3. WARFARIN [Concomitant]
     Active Substance: WARFARIN
     Dosage: LONG TERM MEDICATION
  4. FINASTERIDE. [Concomitant]
     Active Substance: FINASTERIDE
     Dosage: LONG TERM MEDICATION
  5. TAMSULOSIN [Concomitant]
     Active Substance: TAMSULOSIN
     Dosage: LONG TERM MEDICATION
  6. DOXYCYCLINE. [Suspect]
     Active Substance: DOXYCYCLINE
     Indication: SINUSITIS
     Dosage: 100 MG, UNK
     Route: 048
     Dates: start: 20140801, end: 20140804
  7. LANSOPRAZOL [Concomitant]
     Active Substance: LANSOPRAZOLE
     Dosage: LONG TERM MEDICATION
  8. LISINOPRIL. [Concomitant]
     Active Substance: LISINOPRIL
     Dosage: LONG TERM MEDICATION
  9. SPIRIVA [Concomitant]
     Active Substance: TIOTROPIUM BROMIDE MONOHYDRATE
     Dosage: LONG TERM MEDICATION
  10. SALBUTAMOL [Concomitant]
     Active Substance: ALBUTEROL
     Dosage: LONG TERM MEDICATION

REACTIONS (7)
  - Chronic obstructive pulmonary disease [Recovered/Resolved]
  - Urticaria [Recovered/Resolved]
  - Peak expiratory flow rate decreased [Recovered/Resolved]
  - Product quality issue [Unknown]
  - Hypersensitivity [Recovered/Resolved]
  - Rhinorrhoea [Recovered/Resolved]
  - Dyspnoea [Recovered/Resolved]

NARRATIVE: CASE EVENT DATE: 20140804
